FAERS Safety Report 6000908-X (Version None)
Quarter: 2008Q4

REPORT INFORMATION
  Report Type: 
  Country: None (occurrence: None)
  Receive Date: 20081215
  Receipt Date: 20081203
  Transmission Date: 20090506
  Serious: Yes (Death)
  Sender: FDA-Public Use
  Company Number: JP-SANOFI-SYNTHELABO-A01200815628

PATIENT
  Age: 67 Year
  Sex: Male

DRUGS (5)
  1. LEUCOVORIN CALCIUM [Suspect]
     Route: 041
  2. FLUOROURACIL [Suspect]
     Route: 042
  3. IRINOTECAN HYDROCHLORIDE [Suspect]
     Route: 041
  4. AVASTIN [Suspect]
     Route: 041
     Dates: start: 20080218
  5. ELPLAT [Suspect]
     Route: 041

REACTIONS (1)
  - SUDDEN DEATH [None]
